FAERS Safety Report 4711476-4 (Version None)
Quarter: 2005Q3

REPORT INFORMATION
  Report Type: 
  Country: None (occurrence: None)
  Receive Date: 20050711
  Receipt Date: 20050624
  Transmission Date: 20060218
  Serious: Yes (Other)
  Sender: FDA-Public Use
  Company Number: SUS1-2005-00509

PATIENT
  Age: 14 Year
  Sex: Male

DRUGS (1)
  1. ADDERALL 10 [Suspect]
     Dates: start: 20040101

REACTIONS (1)
  - PETIT MAL EPILEPSY [None]
